FAERS Safety Report 11369006 (Version 5)
Quarter: 2015Q4

REPORT INFORMATION
  Report Type: Report from Study
  Country: AU (occurrence: AU)
  Receive Date: 20150812
  Receipt Date: 20151201
  Transmission Date: 20160304
  Serious: Yes (Hospitalization, Other)
  Sender: FDA-Public Use
  Company Number: PHHY2015AU095754

PATIENT
  Sex: Female

DRUGS (1)
  1. SANDOSTATIN LAR DEPOT [Suspect]
     Active Substance: OCTREOTIDE ACETATE
     Indication: CARCINOID SYNDROME
     Dosage: 10 MG, UNK
     Route: 030

REACTIONS (4)
  - Cerebrovascular accident [Recovering/Resolving]
  - Lip and/or oral cavity cancer [Unknown]
  - Throat cancer [Unknown]
  - Second primary malignancy [Unknown]
